FAERS Safety Report 17551842 (Version 5)
Quarter: 2022Q2

REPORT INFORMATION
  Report Type: Report from Study
  Country: CA (occurrence: CA)
  Receive Date: 20200317
  Receipt Date: 20220621
  Transmission Date: 20220721
  Serious: Yes (Hospitalization)
  Sender: FDA-Public Use
  Company Number: CA-JNJFOC-20200114139

PATIENT
  Age: 60 Year
  Sex: Female
  Weight: 85.8 kg

DRUGS (3)
  1. STELARA [Suspect]
     Active Substance: USTEKINUMAB
     Indication: Crohn^s disease
     Dosage: PATIENT DOING SELF INJECTIONS AT HOME
     Route: 058
     Dates: start: 20180117, end: 2020
  2. STELARA [Suspect]
     Active Substance: USTEKINUMAB
     Dosage: PT NOW DOING SELF-INJECTIONS AT HOME?THERAPY DATE 27/MAY/2020
     Route: 058
     Dates: start: 202004
  3. METHOTREXATE [Concomitant]
     Active Substance: METHOTREXATE
     Indication: Crohn^s disease
     Route: 048

REACTIONS (6)
  - Ileal perforation [Recovered/Resolved]
  - Intestinal obstruction [Recovered/Resolved]
  - Pyrexia [Recovered/Resolved]
  - Chills [Recovered/Resolved]
  - Drug ineffective [Unknown]
  - Off label use [Unknown]

NARRATIVE: CASE EVENT DATE: 20191201
